FAERS Safety Report 7509347-3 (Version None)
Quarter: 2011Q2

REPORT INFORMATION
  Report Type: 
  Country: None (occurrence: None)
  Receive Date: 20110527
  Receipt Date: 20110516
  Transmission Date: 20111010
  Serious: Yes (Hospitalization)
  Sender: FDA-Public Use
  Company Number: PHHY2011CH42139

PATIENT
  Age: 10 Year
  Sex: Female

DRUGS (2)
  1. ZADITEN SDU [Suspect]
     Dosage: 1 DRP, UNK,DAILY
     Dates: start: 20110506, end: 20110509
  2. ZADITEN SDU [Suspect]
     Dosage: 2 DRP, UNK,DAILY
     Dates: start: 20110504, end: 20110505

REACTIONS (2)
  - ELECTROCARDIOGRAM QT PROLONGED [None]
  - MALAISE [None]
